FAERS Safety Report 12728789 (Version 4)
Quarter: 2016Q4

REPORT INFORMATION
  Report Type: Report from Study
  Country: US (occurrence: US)
  Receive Date: 20160909
  Receipt Date: 20161130
  Transmission Date: 20170207
  Serious: Yes (Hospitalization)
  Sender: FDA-Public Use
  Company Number: US-ACTELION-A-NJ2016-140860

PATIENT
  Age: 71 Year
  Sex: Female
  Weight: 68.27 kg

DRUGS (7)
  1. UPTRAVI [Suspect]
     Active Substance: SELEXIPAG
     Indication: PULMONARY HYPERTENSION
     Dosage: 400 MCG, BID
     Route: 048
     Dates: start: 20160728
  2. ADCIRCA [Concomitant]
     Active Substance: TADALAFIL
  3. TYVASO [Concomitant]
     Active Substance: TREPROSTINIL
  4. LETAIRIS [Concomitant]
     Active Substance: AMBRISENTAN
  5. UPTRAVI [Suspect]
     Active Substance: SELEXIPAG
     Dosage: 800 MCG, BID
     Route: 048
  6. UPTRAVI [Suspect]
     Active Substance: SELEXIPAG
     Dosage: 600 MCG, BID
     Route: 048
  7. LASIX [Concomitant]
     Active Substance: FUROSEMIDE
     Dosage: MONDAYS AND FRIDAYS

REACTIONS (14)
  - Pain [Recovering/Resolving]
  - Electrolyte imbalance [Unknown]
  - Dizziness [Unknown]
  - Nausea [Unknown]
  - Functional gastrointestinal disorder [Unknown]
  - Myalgia [Unknown]
  - Walking distance test abnormal [Unknown]
  - Diarrhoea [Unknown]
  - Clostridium difficile colitis [Unknown]
  - Blood sodium decreased [Recovering/Resolving]
  - Dehydration [Recovering/Resolving]
  - Feeling hot [Unknown]
  - Headache [Unknown]
  - Malaise [Recovering/Resolving]
